FAERS Safety Report 20697310 (Version 1)
Quarter: 2022Q2

REPORT INFORMATION
  Report Type: Spontaneous
  Country: US (occurrence: None)
  Receive Date: 20220408
  Receipt Date: 20220408
  Transmission Date: 20220720
  Serious: No
  Sender: FDA-Public Use
  Company Number: None

PATIENT
  Age: 77 Year
  Sex: Female

DRUGS (1)
  1. CAPECITABINE [Suspect]
     Active Substance: CAPECITABINE
     Dosage: 1000MG AM 1500MG P  DAILY ORAL?
     Route: 048
     Dates: start: 202104

REACTIONS (3)
  - Blood urine present [None]
  - Paraesthesia [None]
  - Dry skin [None]

NARRATIVE: CASE EVENT DATE: 20220401
